FAERS Safety Report 6781216-6 (Version None)
Quarter: 2010Q2

REPORT INFORMATION
  Report Type: 
  Country: None (occurrence: None)
  Receive Date: 20100616
  Receipt Date: 20100607
  Transmission Date: 20101027
  Serious: Yes (Hospitalization)
  Sender: FDA-Public Use
  Company Number: TCI2010A02162

PATIENT
  Age: 70 Year
  Sex: Female

DRUGS (6)
  1. ACTOS [Suspect]
     Indication: TYPE 2 DIABETES MELLITUS
     Dosage: 15 MG (15 MG, 1 D) PER ORAL
     Route: 048
     Dates: start: 20090402, end: 20090703
  2. ALPHA GLUCOSIDASE INHIBITORS [Concomitant]
  3. SULFONAMIDES, UREA DERIVATIVES [Concomitant]
  4. BIGUANIDES [Concomitant]
  5. CALCIUM CHANNEL BLOCKERS [Concomitant]
  6. ANGIOTENSIN II ANTAGONISTS [Concomitant]

REACTIONS (1)
  - INTERSTITIAL LUNG DISEASE [None]
